FAERS Safety Report 9421094 (Version 3)
Quarter: 2014Q1

REPORT INFORMATION
  Report Type: Spontaneous
  Country: US (occurrence: US)
  Receive Date: 20130725
  Receipt Date: 20140122
  Transmission Date: 20141002
  Serious: Yes (Other)
  Sender: FDA-Public Use
  Company Number: CHPA2013US011584

PATIENT
  Age: 48 Year
  Sex: Female

DRUGS (3)
  1. TRANSDERM SCOP [Suspect]
     Indication: MOTION SICKNESS
     Dosage: 1 DF,  UNK
     Route: 062
     Dates: start: 20130714, end: 20130719
  2. TRANSDERM SCOP [Suspect]
     Dosage: UNK, UNK
     Route: 062
  3. MECLIZINE [Concomitant]
     Indication: MOTION SICKNESS
     Dosage: UNK, UNK

REACTIONS (6)
  - Temporomandibular joint syndrome [Unknown]
  - Limb injury [Recovering/Resolving]
  - Contusion [Unknown]
  - Headache [Unknown]
  - Malaise [Recovering/Resolving]
  - Expired drug administered [Unknown]
